FAERS Safety Report 5761063-4 (Version None)
Quarter: 2008Q2

REPORT INFORMATION
  Report Type: 
  Country: None (occurrence: None)
  Receive Date: 20080606
  Receipt Date: 20080530
  Transmission Date: 20081010
  Serious: Yes (Other)
  Sender: FDA-Public Use
  Company Number: US-ASTRAZENECA-2007UW15253

PATIENT
  Age: 81 Year
  Sex: Female
  Weight: 63.5 kg

DRUGS (8)
  1. METOPROLOL SUCCINATE [Suspect]
     Indication: DYSLIPIDAEMIA
     Route: 048
  2. METOPROLOL SUCCINATE [Suspect]
     Route: 048
  3. ARIMIDEX [Suspect]
     Indication: BREAST CANCER
     Route: 048
  4. TOPROL-XL [Concomitant]
     Route: 048
  5. AMBIEN [Concomitant]
  6. MULTI-VITAMIN [Concomitant]
  7. DIOVAN [Concomitant]
  8. HYDROCHLOROTHIAZIDE [Concomitant]

REACTIONS (4)
  - ASTHENIA [None]
  - DEPRESSION [None]
  - DIZZINESS [None]
  - HYPERTENSION [None]
